FAERS Safety Report 15814611 (Version 1)
Quarter: 2019Q1

REPORT INFORMATION
  Report Type: Report from Study
  Country: NL (occurrence: NL)
  Receive Date: 20190111
  Receipt Date: 20190111
  Transmission Date: 20190417
  Serious: Yes (Death, Hospitalization, Other)
  Sender: FDA-Public Use
  Company Number: NL-BRISTOL-MYERS SQUIBB COMPANY-BMS-2018-123066

PATIENT
  Age: 64 Year
  Sex: Male
  Weight: 69.2 kg

DRUGS (2)
  1. IPILIMUMAB [Suspect]
     Active Substance: IPILIMUMAB
     Indication: BLADDER CANCER
     Dosage: 3 MG/KG=206 MG
     Route: 042
     Dates: start: 20181210
  2. NIVOLUMAB [Suspect]
     Active Substance: NIVOLUMAB
     Indication: BLADDER CANCER
     Dosage: 1 MG/KG=69 MG
     Route: 042
     Dates: start: 20181210, end: 20181210

REACTIONS (2)
  - Urosepsis [Fatal]
  - Myocardial infarction [Fatal]

NARRATIVE: CASE EVENT DATE: 20181229
